FAERS Safety Report 11419646 (Version 1)
Quarter: 2015Q3

REPORT INFORMATION
  Report Type: Spontaneous
  Country: US (occurrence: None)
  Receive Date: 20150825
  Receipt Date: 20150825
  Transmission Date: 20151125
  Serious: Yes (Life-Threatening)
  Sender: FDA-Public Use
  Company Number: None

PATIENT
  Age: 55 Year
  Sex: Female
  Weight: 79.38 kg

DRUGS (2)
  1. CITALOPRAM [Suspect]
     Active Substance: CITALOPRAM HYDROBROMIDE
     Indication: STRESS
     Dosage: TAKEN BY MOUTH
     Dates: start: 20150814, end: 20150816
  2. CITALOPRAM [Suspect]
     Active Substance: CITALOPRAM HYDROBROMIDE
     Indication: ANXIETY
     Dosage: TAKEN BY MOUTH
     Dates: start: 20150814, end: 20150816

REACTIONS (7)
  - Decreased appetite [None]
  - Headache [None]
  - Depression [None]
  - Nausea [None]
  - Somnolence [None]
  - Fatigue [None]
  - Hypophagia [None]

NARRATIVE: CASE EVENT DATE: 20150815
